FAERS Safety Report 8436337-9 (Version None)
Quarter: 2012Q2

REPORT INFORMATION
  Report Type: 
  Country: None (occurrence: None)
  Receive Date: 20120614
  Receipt Date: 20120605
  Transmission Date: 20120825
  Serious: Yes (Other)
  Sender: FDA-Public Use
  Company Number: US-ASTRAZENECA-2012SE19225

PATIENT
  Age: 49 Year
  Sex: Female

DRUGS (2)
  1. NEXIUM [Suspect]
     Route: 048
  2. PRILOSEC OTC [Suspect]
     Route: 048

REACTIONS (9)
  - DIABETES MELLITUS [None]
  - THYROID DISORDER [None]
  - HERNIA [None]
  - DIARRHOEA [None]
  - EROSIVE OESOPHAGITIS [None]
  - CHEST PAIN [None]
  - DIABETIC EYE DISEASE [None]
  - DRUG DOSE OMISSION [None]
  - DYSPHAGIA [None]
